FAERS Safety Report 5515842-9 (Version None)
Quarter: 2007Q4

REPORT INFORMATION
  Report Type: 
  Country: None (occurrence: None)
  Receive Date: 20071114
  Receipt Date: 20071102
  Transmission Date: 20080405
  Serious: Yes (Death)
  Sender: FDA-Public Use
  Company Number: US-TYCO HEALTHCARE/MALLINCKRODT-T200701361

PATIENT

DRUGS (2)
  1. METHADONE [Suspect]
  2. TRAMADOL [Interacting]

REACTIONS (1)
  - DRUG INTERACTION [None]
